FAERS Safety Report 21113793 (Version 2)
Quarter: 2022Q3

REPORT INFORMATION
  Report Type: Report from Study
  Country: RU (occurrence: RU)
  Receive Date: 20220721
  Receipt Date: 20220829
  Transmission Date: 20221027
  Serious: Yes (Hospitalization)
  Sender: FDA-Public Use
  Company Number: RU-NOVARTISPH-NVSC2022RU163362

PATIENT
  Age: 63 Year
  Sex: Female
  Weight: 74 kg

DRUGS (8)
  1. LETROZOLE [Suspect]
     Active Substance: LETROZOLE
     Indication: Breast cancer
     Dosage: 2.5 MG, OD
     Route: 048
     Dates: start: 20220710
  2. LISINOPRIL [Concomitant]
     Active Substance: LISINOPRIL
     Indication: Hypertension
     Dosage: 10 MG, OD
     Route: 048
     Dates: start: 20100310
  3. BISOPROLOL [Concomitant]
     Active Substance: BISOPROLOL
     Indication: Hypertension
     Dosage: 1 TAB, OD
     Route: 048
     Dates: start: 20100310
  4. INDAPAMIDE [Concomitant]
     Active Substance: INDAPAMIDE
     Indication: Hypertension
     Dosage: 2.5 MG, OD
     Route: 048
     Dates: start: 20100310
  5. CALCIUM\CHOLECALCIFEROL [Concomitant]
     Active Substance: CALCIUM\CHOLECALCIFEROL
     Indication: Osteoarthritis
     Dosage: 500 MG, TID
     Route: 048
     Dates: start: 20211130
  6. KETONAL [Concomitant]
     Indication: Neck pain
     Dosage: 1 TAB, BID
     Route: 048
     Dates: start: 20220214
  7. ATORVASTATIN [Concomitant]
     Active Substance: ATORVASTATIN
     Indication: Cerebrovascular disorder
     Dosage: 20 MG, OD
     Route: 048
     Dates: start: 20220626
  8. MAGNESIUM ASPARTATE\POTASSIUM ASPARTATE [Concomitant]
     Active Substance: MAGNESIUM ASPARTATE\POTASSIUM ASPARTATE
     Indication: Blood potassium decreased
     Dosage: 1 TAB, BID
     Route: 048
     Dates: start: 20220513

REACTIONS (1)
  - Osteoarthritis [Recovered/Resolved]

NARRATIVE: CASE EVENT DATE: 20220718
